FAERS Safety Report 25749267 (Version 1)
Quarter: 2025Q3

REPORT INFORMATION
  Report Type: Spontaneous
  Country: BR (occurrence: BR)
  Receive Date: 20250902
  Receipt Date: 20250902
  Transmission Date: 20251020
  Serious: Yes (Death, Other)
  Sender: AMGEN
  Company Number: BR-AMGEN-BRASP2025171247

PATIENT

DRUGS (4)
  1. ENBREL [Suspect]
     Active Substance: ETANERCEPT
     Indication: Psoriasis
     Dosage: 50 MILLIGRAM, 2 TIMES/WK
     Route: 065
  2. IXEKIZUMAB [Suspect]
     Active Substance: IXEKIZUMAB
     Indication: Psoriasis
     Route: 065
  3. IXEKIZUMAB [Suspect]
     Active Substance: IXEKIZUMAB
     Dosage: 80 MILLIGRAM, Q2WK
     Route: 065
  4. IXEKIZUMAB [Suspect]
     Active Substance: IXEKIZUMAB
     Dosage: 80 MILLIGRAM, Q4WK
     Route: 065

REACTIONS (14)
  - Cerebrovascular disorder [Fatal]
  - Cardiovascular disorder [Fatal]
  - Hepatitis [Recovered/Resolved]
  - Headache [Unknown]
  - Injection site reaction [Unknown]
  - Injection site erythema [Unknown]
  - Nasopharyngitis [Unknown]
  - Balanoposthitis [Unknown]
  - Pharyngitis [Unknown]
  - Bronchitis [Unknown]
  - Psoriasis [Unknown]
  - Pruritus [Unknown]
  - Upper respiratory tract infection [Unknown]
  - Hypertriglyceridaemia [Unknown]
